FAERS Safety Report 7019893-7 (Version None)
Quarter: 2010Q3

REPORT INFORMATION
  Report Type: 
  Country: None (occurrence: None)
  Receive Date: 20100929
  Receipt Date: 20100323
  Transmission Date: 20110219
  Serious: Yes (Hospitalization)
  Sender: FDA-Public Use
  Company Number: US-BAYER-200939110NA

PATIENT
  Age: 17 Year
  Sex: Female
  Weight: 70 kg

DRUGS (28)
  1. YAZ [Suspect]
     Indication: CONTRACEPTION
     Dates: start: 20080401
  2. ALBUTEROL [Concomitant]
     Indication: ASTHMA
     Dates: start: 20030101
  3. TYLENOL [Concomitant]
  4. ALEVE (CAPLET) [Concomitant]
  5. AZITHROMYCIN [Concomitant]
     Dates: start: 20081101
  6. AZITHROMYCIN [Concomitant]
     Dates: start: 20080101
  7. AZITHROMYCIN [Concomitant]
     Dates: start: 20071101
  8. HYDROCODONE [Concomitant]
     Dates: start: 20080901, end: 20081001
  9. PERMETHRIN [Concomitant]
     Dates: start: 20080901
  10. ACETAMINOPHEN [Concomitant]
     Dates: start: 20081001, end: 20090401
  11. CIPROFLOXACIN [Concomitant]
     Dates: start: 20081101
  12. METRONIDAZOLE [Concomitant]
     Dates: start: 20090301
  13. TUSSIONEX [Concomitant]
     Dates: start: 20081101
  14. TRANSDERM SCOP [Concomitant]
     Dates: start: 20090701
  15. CEPHALEXIN [Concomitant]
     Dates: start: 20090701
  16. TRAMADOL [Concomitant]
     Dates: start: 20090801
  17. CEFUROXIME [Concomitant]
     Dates: start: 20081201
  18. FENTANYL CITRATE [Concomitant]
     Indication: PAIN
     Route: 042
  19. MORPHINE SULFATE [Concomitant]
     Route: 042
  20. MEPERIDINE HCL [Concomitant]
     Indication: CHILLS
  21. KETOROLAC TROMETHAMINE [Concomitant]
     Route: 042
  22. ONDANSETRON HYDROCHLORIDE [Concomitant]
     Indication: NAUSEA
     Route: 048
  23. ONDANSETRON HYDROCHLORIDE [Concomitant]
     Route: 055
  24. HYDROMORPHONE HCL [Concomitant]
     Indication: PAIN
     Route: 042
  25. DIMENHYDRINATE [Concomitant]
     Indication: PAIN
     Route: 042
  26. HYDROCODE [Concomitant]
  27. OXYCODONE HYDROCHLORIDE [Concomitant]
  28. PROPOXYPHENE HCL [Concomitant]

REACTIONS (4)
  - ABDOMINAL PAIN [None]
  - CHOLECYSTITIS CHRONIC [None]
  - NAUSEA [None]
  - VOMITING [None]
